FAERS Safety Report 13487660 (Version 1)
Quarter: 2017Q2

REPORT INFORMATION
  Report Type: Spontaneous
  Country: CH (occurrence: CH)
  Receive Date: 20170426
  Receipt Date: 20170426
  Transmission Date: 20170830
  Serious: Yes (Hospitalization, Other)
  Sender: FDA-Public Use
  Company Number: CH-009507513-1704CHE007784

PATIENT
  Age: 23 Year
  Sex: Female

DRUGS (2)
  1. TRUVADA [Suspect]
     Active Substance: EMTRICITABINE\TENOFOVIR DISOPROXIL FUMARATE
     Indication: PROPHYLAXIS
     Dosage: 1 TABLET DAILY (ALSO REPORTED AS ^TAKE A SINGLE TABLET^)
     Route: 048
     Dates: start: 20170201, end: 20170201
  2. ISENTRESS [Suspect]
     Active Substance: RALTEGRAVIR POTASSIUM
     Indication: PROPHYLAXIS
     Dosage: 400MG, TWICE DAILY (ALSO REPORTED AS ^TOOK ONLY TWO TABLETS^)
     Route: 048
     Dates: start: 20170201, end: 20170201

REACTIONS (3)
  - Retroperitoneal haematoma [Unknown]
  - Anaemia [Recovering/Resolving]
  - Acquired haemophilia [Unknown]

NARRATIVE: CASE EVENT DATE: 20170318
